FAERS Safety Report 20924096 (Version 1)
Quarter: 2022Q2

REPORT INFORMATION
  Report Type: Report from Study
  Country: AU (occurrence: AU)
  Receive Date: 20220607
  Receipt Date: 20220607
  Transmission Date: 20220721
  Serious: Yes (Death, Hospitalization)
  Sender: FDA-Public Use
  Company Number: AU-MYLANLABS-2022M1042679

PATIENT
  Age: 45 Year
  Sex: Female

DRUGS (2)
  1. FENTANYL [Suspect]
     Active Substance: FENTANYL
     Indication: Cancer pain
     Dosage: 50 MICROGRAM, TOTAL
     Route: 045
  2. MORPHINE [Suspect]
     Active Substance: MORPHINE
     Indication: Cancer pain
     Dosage: 45 MILLIGRAM, QH
     Route: 058

REACTIONS (4)
  - Respiratory depression [Fatal]
  - Toxicity to various agents [Fatal]
  - Hypotension [Fatal]
  - Depressed level of consciousness [Fatal]
